FAERS Safety Report 6102258-X (Version None)
Quarter: 2009Q1

REPORT INFORMATION
  Report Type: 
  Country: None (occurrence: None)
  Receive Date: 20090304
  Receipt Date: 20090226
  Transmission Date: 20090719
  Serious: Yes (Hospitalization)
  Sender: FDA-Public Use
  Company Number: FR-ABBOTT-09P-056-0559564-00

PATIENT
  Sex: Male

DRUGS (7)
  1. DEPAKOTE [Suspect]
     Indication: PSYCHOTIC DISORDER
     Route: 048
     Dates: start: 20081201, end: 20090117
  2. LEPONEX [Suspect]
     Indication: HALLUCINATION
     Route: 048
     Dates: start: 20061128, end: 20090116
  3. LEPONEX [Suspect]
     Route: 065
  4. STILNOX [Concomitant]
     Indication: INSOMNIA
     Route: 048
     Dates: start: 20081201, end: 20090115
  5. LEXOMIL [Concomitant]
     Indication: ANXIETY
     Route: 048
     Dates: start: 20060101, end: 20090115
  6. ATARAX [Concomitant]
     Indication: ANXIETY
     Route: 048
     Dates: start: 20081201, end: 20090115
  7. GLUCOVANCE [Concomitant]
     Indication: TYPE 2 DIABETES MELLITUS
     Route: 048
     Dates: start: 20060101, end: 20090115

REACTIONS (5)
  - CYTOLYTIC HEPATITIS [None]
  - LIVER INJURY [None]
  - PNEUMONIA ASPIRATION [None]
  - RESPIRATORY DEPRESSION [None]
  - SOMNOLENCE [None]
